FAERS Safety Report 5166822-7 (Version None)
Quarter: 2006Q4

REPORT INFORMATION
  Report Type: 
  Country: None (occurrence: None)
  Receive Date: 20061204
  Receipt Date: 20061204
  Transmission Date: 20070319
  Serious: Yes (Death)
  Sender: FDA-Public Use
  Company Number: None

PATIENT
  Age: 77 Year
  Sex: Female
  Weight: 81.6 kg

DRUGS (2)
  1. LIPITOR [Suspect]
     Indication: BLOOD CHOLESTEROL INCREASED
     Dosage: 80 MG  ONCE DAILY  PO
     Route: 048
     Dates: start: 20061121, end: 20061128
  2. CRESTOR [Suspect]
     Indication: BLOOD CHOLESTEROL INCREASED
     Dosage: 10 MG  ONCE DAILY  PO
     Route: 048
     Dates: start: 20061121, end: 20061128

REACTIONS (2)
  - ACUTE HEPATIC FAILURE [None]
  - RESPIRATORY FAILURE [None]
